FAERS Safety Report 23340228 (Version 1)
Quarter: 2023Q4

REPORT INFORMATION
  Report Type: Spontaneous
  Country: US (occurrence: US)
  Receive Date: 20231227
  Receipt Date: 20231227
  Transmission Date: 20240109
  Serious: No
  Sender: FDA-Public Use
  Company Number: US-PADAGIS-2023PAD01818

PATIENT

DRUGS (2)
  1. CICLOPIROX OLAMINE [Suspect]
     Active Substance: CICLOPIROX OLAMINE
     Indication: Onychomycosis
     Dosage: UNK, UNK
     Route: 061
     Dates: start: 2023, end: 2023
  2. CICLOPIROX [Suspect]
     Active Substance: CICLOPIROX\TOCOPHEROL
     Indication: Onychomycosis
     Dosage: UNK, UNK
     Route: 061
     Dates: start: 20230728, end: 20231207

REACTIONS (9)
  - Application site haemorrhage [Recovered/Resolved]
  - Onychoclasis [Unknown]
  - Nail growth abnormal [Unknown]
  - Abdominal discomfort [Unknown]
  - Nail disorder [Unknown]
  - Nail discolouration [Unknown]
  - Condition aggravated [Unknown]
  - Drug ineffective [Unknown]
  - Product use in unapproved indication [Unknown]

NARRATIVE: CASE EVENT DATE: 20230801
